FAERS Safety Report 15481672 (Version 1)
Quarter: 2018Q4

REPORT INFORMATION
  Report Type: Spontaneous
  Country: US (occurrence: US)
  Receive Date: 20181003
  Receipt Date: 20181003
  Transmission Date: 20190205
  Serious: Yes (Other)
  Sender: FDA-Public Use
  Company Number: None

PATIENT
  Age: 64 Year
  Sex: Male
  Weight: 86.18 kg

DRUGS (3)
  1. HYDROCHLOROT [Concomitant]
     Active Substance: HYDROCHLOROTHIAZIDE
  2. TESTOSTERONE CYP [Concomitant]
     Active Substance: TESTOSTERONE CYPIONATE
  3. XIAFLEX [Suspect]
     Active Substance: COLLAGENASE CLOSTRIDIUM HISTOLYTICUM
     Indication: PEYRONIE^S DISEASE
     Dosage: ?          QUANTITY:2 DF DOSAGE FORM;OTHER FREQUENCY:2 INJECTIONS 1 WEE;OTHER ROUTE:1 CYCLE, 2 INJECTIONS 1 WEEK APART?
     Dates: start: 20170404, end: 20180110

REACTIONS (2)
  - Drug ineffective [None]
  - Injection site discomfort [None]

NARRATIVE: CASE EVENT DATE: 20170412
